FAERS Safety Report 15097440 (Version 1)
Quarter: 2018Q3

REPORT INFORMATION
  Report Type: Spontaneous
  Country: DE (occurrence: DE)
  Receive Date: 20180702
  Receipt Date: 20180702
  Transmission Date: 20181010
  Serious: Yes (Other)
  Sender: FDA-Public Use
  Company Number: DE-GUERBET-DE-20180068

PATIENT
  Sex: Male

DRUGS (1)
  1. DOTAREM [Suspect]
     Active Substance: GADOTERATE MEGLUMINE
     Indication: NUCLEAR MAGNETIC RESONANCE IMAGING
     Route: 065
     Dates: start: 201802, end: 201802

REACTIONS (4)
  - Condition aggravated [Unknown]
  - Toxicity to various agents [Unknown]
  - Contrast media reaction [Unknown]
  - Medication residue present [Unknown]

NARRATIVE: CASE EVENT DATE: 201802
